FAERS Safety Report 16103704 (Version 1)
Quarter: 2019Q1

REPORT INFORMATION
  Report Type: Spontaneous
  Country: US (occurrence: US)
  Receive Date: 20190322
  Receipt Date: 20190322
  Transmission Date: 20190418
  Serious: No
  Sender: FDA-Public Use
  Company Number: US-ASTRAZENECA-2019SE31623

PATIENT
  Sex: Female

DRUGS (1)
  1. SYMBICORT [Suspect]
     Active Substance: BUDESONIDE\FORMOTEROL FUMARATE DIHYDRATE
     Indication: WHEEZING
     Dosage: 80/4.5 MCG, 2 PUFFS TWICE DAILY
     Route: 055

REACTIONS (3)
  - Wheezing [Unknown]
  - Bronchitis chronic [Unknown]
  - Intentional product misuse [Unknown]
